FAERS Safety Report 21254040 (Version 1)
Quarter: 2022Q3

REPORT INFORMATION
  Report Type: Spontaneous
  Country: IN (occurrence: IN)
  Receive Date: 20220825
  Receipt Date: 20220825
  Transmission Date: 20221026
  Serious: Yes (Other)
  Sender: FDA-Public Use
  Company Number: IN-PFIZER INC-2021017561

PATIENT
  Age: 81 Year
  Sex: Male

DRUGS (1)
  1. SUTENT [Suspect]
     Active Substance: SUNITINIB MALATE
     Indication: Metastatic renal cell carcinoma
     Dosage: 25 MG, CYCLIC (OD X 2 WEEKS, 1 WEEK GAP)
     Route: 048
     Dates: start: 2009

REACTIONS (3)
  - Seizure [Unknown]
  - Oliguria [Unknown]
  - Pyrexia [Unknown]
